FAERS Safety Report 7142740-X (Version None)
Quarter: 2010Q4

REPORT INFORMATION
  Report Type: 
  Country: None (occurrence: None)
  Receive Date: 20101207
  Receipt Date: 20101126
  Transmission Date: 20110411
  Serious: Yes (Other)
  Sender: FDA-Public Use
  Company Number: PHHY2010VE81143

PATIENT
  Sex: Female

DRUGS (2)
  1. ACLASTA [Suspect]
     Indication: OSTEOPOROSIS
     Dosage: 5 MG/ YEAR
     Route: 042
  2. CALCIUM [Concomitant]

REACTIONS (3)
  - HEADACHE [None]
  - HYDRONEPHROSIS [None]
  - PYREXIA [None]
